FAERS Safety Report 7268994-7 (Version None)
Quarter: 2011Q1

REPORT INFORMATION
  Report Type: 
  Country: None (occurrence: None)
  Receive Date: 20110201
  Receipt Date: 20110121
  Transmission Date: 20110831
  Serious: Yes (Other)
  Sender: FDA-Public Use
  Company Number: DE-BAYER-201015944GPV

PATIENT
  Sex: Female
  Weight: 64 kg

DRUGS (2)
  1. AVELOX [Suspect]
     Indication: BRONCHITIS
     Dosage: DAILY DOSE 400 MG
     Route: 048
     Dates: start: 20091201, end: 20100106
  2. AVELOX [Suspect]
     Indication: SINUSITIS

REACTIONS (24)
  - PYREXIA [None]
  - LYMPHOCYTE STIMULATION TEST POSITIVE [None]
  - TEMPERATURE INTOLERANCE [None]
  - TOXICITY TO VARIOUS AGENTS [None]
  - PAIN [None]
  - HYPERAESTHESIA [None]
  - TENDON PAIN [None]
  - DIARRHOEA [None]
  - BEDRIDDEN [None]
  - ARTHRALGIA [None]
  - RASH MORBILLIFORM [None]
  - MUSCLE SPASMS [None]
  - CHEST PAIN [None]
  - TENDERNESS [None]
  - LIVER FUNCTION TEST ABNORMAL [None]
  - ASTHENIA [None]
  - NAUSEA [None]
  - RASH [None]
  - VASCULITIS [None]
  - MYALGIA [None]
  - TINNITUS [None]
  - SOFT TISSUE DISORDER [None]
  - NEURALGIA [None]
  - DRUG HYPERSENSITIVITY [None]
